FAERS Safety Report 12406234 (Version 1)
Quarter: 2016Q2

REPORT INFORMATION
  Report Type: Spontaneous
  Country: US (occurrence: None)
  Receive Date: 20160525
  Receipt Date: 20160525
  Transmission Date: 20160815
  Serious: No
  Sender: FDA-Public Use
  Company Number: None

PATIENT
  Sex: Male

DRUGS (1)
  1. SUTENT [Suspect]
     Active Substance: SUNITINIB MALATE
     Indication: HEPATIC CANCER
     Route: 048

REACTIONS (2)
  - Skin exfoliation [None]
  - Pain in extremity [None]

NARRATIVE: CASE EVENT DATE: 2016
